FAERS Safety Report 9687877 (Version 1)
Quarter: 2013Q4

REPORT INFORMATION
  Report Type: Spontaneous
  Country: JP (occurrence: JP)
  Receive Date: 20131114
  Receipt Date: 20131114
  Transmission Date: 20140711
  Serious: Yes (Other)
  Sender: FDA-Public Use
  Company Number: JP-JNJFOC-20131105800

PATIENT
  Age: 93 Year
  Sex: Male

DRUGS (3)
  1. TRAMCET [Suspect]
     Indication: PAIN
     Route: 048
     Dates: start: 20131107, end: 20131107
  2. REBAMIPIDE [Concomitant]
     Indication: GASTRITIS
     Route: 048
     Dates: start: 20131107, end: 20131107
  3. NAUZELIN [Concomitant]
     Indication: PROPHYLAXIS OF NAUSEA AND VOMITING
     Route: 048
     Dates: start: 20131107, end: 20131107

REACTIONS (1)
  - Loss of consciousness [Recovered/Resolved]
